FAERS Safety Report 14025184 (Version 1)
Quarter: 2017Q3

REPORT INFORMATION
  Report Type: Spontaneous
  Country: JP (occurrence: JP)
  Receive Date: 20170929
  Receipt Date: 20170929
  Transmission Date: 20171128
  Serious: Yes (Other)
  Sender: FDA-Public Use
  Company Number: JP-BRISTOL-MYERS SQUIBB COMPANY-BMS-2017-086830

PATIENT
  Sex: Male

DRUGS (1)
  1. ELIQUIS [Suspect]
     Active Substance: APIXABAN
     Indication: CEREBROVASCULAR ACCIDENT PROPHYLAXIS
     Dosage: UNK
     Route: 048
     Dates: end: 201709

REACTIONS (7)
  - Malaise [Unknown]
  - Speech disorder [Unknown]
  - Depressed level of consciousness [Unknown]
  - Blood creatinine increased [Unknown]
  - Fall [Unknown]
  - Tongue disorder [Unknown]
  - Muscular weakness [Unknown]
